FAERS Safety Report 18436301 (Version 1)
Quarter: 2020Q4

REPORT INFORMATION
  Report Type: Spontaneous
  Country: DE (occurrence: DE)
  Receive Date: 20201028
  Receipt Date: 20201028
  Transmission Date: 20210114
  Serious: Yes (Disabling)
  Sender: FDA-Public Use
  Company Number: DE-TERSERA THERAPEUTICS LLC-2020TRS003170

PATIENT

DRUGS (2)
  1. ZOLADEX [Suspect]
     Active Substance: GOSERELIN ACETATE
     Indication: BREAST CANCER
     Dosage: 10.8MG, EVERY THREE MONTHS
     Route: 058
  2. EXEMESTAN AL [Concomitant]
     Active Substance: EXEMESTANE
     Indication: PRODUCT USED FOR UNKNOWN INDICATION
     Dosage: 25 ONCE DAILY
     Route: 065

REACTIONS (6)
  - Bone pain [Recovered/Resolved]
  - Off label use [Unknown]
  - Arthralgia [Recovered/Resolved]
  - Neck pain [Recovered/Resolved]
  - Gait disturbance [Recovered/Resolved]
  - Headache [Recovered/Resolved]

NARRATIVE: CASE EVENT DATE: 20200712
